FAERS Safety Report 10201564 (Version 1)
Quarter: 2014Q2

REPORT INFORMATION
  Report Type: Spontaneous
  Country: DE (occurrence: FR)
  Receive Date: 20140528
  Receipt Date: 20140528
  Transmission Date: 20141212
  Serious: Yes (Death)
  Sender: FDA-Public Use
  Company Number: FR-FRI-1000067570

PATIENT
  Age: 86 Year
  Sex: Male

DRUGS (11)
  1. MEMANTINE [Suspect]
     Dosage: 20 MG
     Route: 048
     Dates: end: 20140407
  2. KARDEGIC [Suspect]
     Dosage: 75 MG
     Route: 048
     Dates: end: 20140407
  3. FRAGMINE [Suspect]
     Dosage: 5000 IU
     Route: 058
     Dates: start: 20140403, end: 20140407
  4. FLUOXETINE [Suspect]
     Dosage: 1 DF
     Route: 048
     Dates: end: 20140407
  5. TARDYFERON [Suspect]
     Dosage: 80 MG
     Route: 048
     Dates: end: 20140407
  6. SPECIAFOLDINE [Suspect]
     Dosage: 10 MG
     Route: 048
     Dates: end: 20140407
  7. SERESTA [Suspect]
     Dosage: 10 MG
     Route: 048
     Dates: end: 20140407
  8. IMOVANE [Suspect]
     Dosage: 3.75 MG
     Route: 048
     Dates: end: 20140407
  9. DOLIPRANE [Suspect]
     Dosage: 4 DF
     Route: 048
     Dates: end: 20140407
  10. FORLAX [Suspect]
     Dosage: 1 DF
     Route: 048
     Dates: end: 20140407
  11. ALPRAZOLAM [Suspect]
     Dosage: 3 DF
     Dates: end: 20140407

REACTIONS (3)
  - Haemorrhagic stroke [Fatal]
  - Brain oedema [Fatal]
  - Nervous system disorder [Fatal]
